FAERS Safety Report 4690167-2 (Version None)
Quarter: 2005Q2

REPORT INFORMATION
  Report Type: 
  Country: None (occurrence: None)
  Receive Date: 20050613
  Receipt Date: 20050531
  Transmission Date: 20051028
  Serious: Yes (Disabling, Other)
  Sender: FDA-Public Use
  Company Number: 208077

PATIENT
  Age: 60 Year
  Sex: Male

DRUGS (9)
  1. MABTHERA(RITUXIMAB) CONC FOR SOLUTION FOR INFUSION [Suspect]
     Indication: CHRONIC LYMPHOCYTIC LEUKAEMIA
     Dosage: 950 MG, Q28D, INTRAVENOUS
     Route: 042
     Dates: start: 20040601, end: 20040601
  2. FLUDARABINE PHOSPHATE [Suspect]
     Indication: CHRONIC LYMPHOCYTIC LEUKAEMIA
     Dosage: 35.6 MG, Q28D, INTRAVENOUS
     Route: 042
     Dates: start: 20040601, end: 20040603
  3. CYCLOPHOSPHAMIDE [Suspect]
     Indication: CHRONIC LYMPHOCYTIC LEUKAEMIA
     Dosage: 356, Q28D, INTRAVENOUS
     Route: 042
     Dates: start: 20040601, end: 20040603
  4. SIMVASTATIN [Concomitant]
  5. NEXIUM [Concomitant]
  6. BELOC (METOPROLOL) (METOPROLOL TARTRATE) [Concomitant]
  7. NEUPOGEN [Concomitant]
  8. COTRIM FORTE (TRIMETHOPRIM SULFAMETHOXAZOLE) [Concomitant]
  9. AMPHO MORONAL (AMPHOTERICIN B) [Concomitant]

REACTIONS (3)
  - OPTIC NEURITIS [None]
  - PAPILLITIS [None]
  - VISION BLURRED [None]
